FAERS Safety Report 6372051-1 (Version None)
Quarter: 2009Q3

REPORT INFORMATION
  Report Type: 
  Country: None (occurrence: None)
  Receive Date: 20090917
  Receipt Date: 20090911
  Transmission Date: 20100115
  Serious: Yes (Other)
  Sender: FDA-Public Use
  Company Number: 2009SP025268

PATIENT
  Sex: 0

DRUGS (1)
  1. ROCURONIUM BROMIDE [Suspect]
     Indication: DRUG USE FOR UNKNOWN INDICATION
     Dosage: IV
     Route: 042

REACTIONS (1)
  - RHABDOMYOLYSIS [None]
